FAERS Safety Report 16093837 (Version 1)
Quarter: 2019Q1

REPORT INFORMATION
  Report Type: Spontaneous
  Country: US (occurrence: US)
  Receive Date: 20190215
  Receipt Date: 20190215
  Transmission Date: 20190418
  Serious: No
  Sender: FDA-Public Use
  Company Number: None

PATIENT
  Age: 86 Year
  Sex: Female

DRUGS (2)
  1. TYMLOS [Suspect]
     Active Substance: ABALOPARATIDE
  2. PENNEEDLE UF III 31GX5/16 [Suspect]
     Active Substance: DEVICE
     Indication: SENILE OSTEOPOROSIS
     Dates: start: 20190213

REACTIONS (4)
  - Needle issue [None]
  - Device malfunction [None]
  - Skin laceration [None]
  - Injury associated with device [None]

NARRATIVE: CASE EVENT DATE: 20190215
